FAERS Safety Report 26055814 (Version 2)
Quarter: 2025Q4

REPORT INFORMATION
  Report Type: Spontaneous
  Country: JP (occurrence: JP)
  Receive Date: 20251117
  Receipt Date: 20251121
  Transmission Date: 20260118
  Serious: Yes (Death, Hospitalization, Other)
  Sender: BOEHRINGER INGELHEIM
  Company Number: JP-NBI-2025-BI-107692

PATIENT
  Age: 68 Year
  Sex: Male

DRUGS (1)
  1. SPIRIVA [Suspect]
     Active Substance: TIOTROPIUM BROMIDE MONOHYDRATE
     Indication: Chronic obstructive pulmonary disease

REACTIONS (8)
  - Death [Fatal]
  - Pulmonary congestion [Unknown]
  - Pulmonary hypertension [Unknown]
  - Interstitial lung disease [Unknown]
  - Sarcoidosis [Unknown]
  - Pulmonary hypertension [Unknown]
  - Cardio-respiratory arrest [Unknown]
  - Loss of personal independence in daily activities [Unknown]
